FAERS Safety Report 7271017-7 (Version None)
Quarter: 2011Q1

REPORT INFORMATION
  Report Type: 
  Country: None (occurrence: None)
  Receive Date: 20110202
  Receipt Date: 20110121
  Transmission Date: 20110831
  Serious: Yes (Other)
  Sender: FDA-Public Use
  Company Number: CA-ELI_LILLY_AND_COMPANY-CA200909001170

PATIENT
  Age: 83 Year
  Sex: Female

DRUGS (19)
  1. FORTEO [Suspect]
     Dosage: 20 UG, DAILY (1/D)
     Route: 058
  2. PARIET [Concomitant]
     Dosage: 20 MG, DAILY (1/D)
  3. CLONAZEPAM [Concomitant]
     Dosage: 0.5 MG, AS NEEDED
  4. VITAMIN B-12 [Concomitant]
     Dosage: 1000 UG, DAILY (1/D)
  5. FORTEO [Suspect]
     Indication: OSTEOPOROSIS
     Dosage: 20 UG, DAILY (1/D)
     Route: 058
     Dates: start: 20090813
  6. CALCIUM CARBONATE [Concomitant]
     Dosage: 1250 MG, 2/D
  7. FOLIC ACID [Concomitant]
     Dosage: 1 MG, DAILY (1/D)
  8. FLAXSEED OIL [Concomitant]
     Dosage: UNK, UNKNOWN
  9. ACTONEL [Concomitant]
     Dosage: 35 MG, WEEKLY (1/W)
  10. AMOXICILLIN [Concomitant]
     Dosage: 250 MG, 3/D
  11. DETROL [Concomitant]
     Dosage: 4 MG, DAILY (1/D)
  12. FORTEO [Suspect]
     Dosage: 20 UG, DAILY (1/D)
     Route: 058
  13. NORVASC [Concomitant]
     Dosage: 5 MG, DAILY (1/D)
  14. METHOTREXATE [Concomitant]
     Dosage: 2.5 MG, 8 PER WEEK
  15. MELOXICAM [Concomitant]
     Dosage: 7.5 MG, DAILY (1/D)
  16. MICARDIS [Concomitant]
     Dosage: 80 MG, DAILY (1/D)
  17. VITAMIN D [Concomitant]
     Dosage: 2000 IU, DAILY (1/D)
  18. PREDNISONE [Concomitant]
     Dosage: 5 MG, DAILY (1/D)
  19. TYLENOL W/ CODEINE NO. 2 [Concomitant]
     Dosage: 1 D/F, EVERY 4 HRS

REACTIONS (7)
  - FATIGUE [None]
  - PAIN IN EXTREMITY [None]
  - ARTHRALGIA [None]
  - BACK PAIN [None]
  - KNEE ARTHROPLASTY [None]
  - ASTHENIA [None]
  - PALLOR [None]
